FAERS Safety Report 16206452 (Version 1)
Quarter: 2019Q2

REPORT INFORMATION
  Report Type: Spontaneous
  Country: US (occurrence: US)
  Receive Date: 20190416
  Receipt Date: 20190416
  Transmission Date: 20190711
  Serious: Yes (Other)
  Sender: FDA-Public Use
  Company Number: None

PATIENT
  Age: 82 Year
  Sex: Female

DRUGS (11)
  1. JANUVIA [Concomitant]
     Active Substance: SITAGLIPTIN PHOSPHATE
     Dates: start: 20180523, end: 20190416
  2. METOPROLOL SUCCINATE. [Concomitant]
     Active Substance: METOPROLOL SUCCINATE
     Dates: start: 20150502, end: 20190416
  3. CITALOPRAM [Concomitant]
     Active Substance: CITALOPRAM HYDROBROMIDE
     Dates: start: 20170611, end: 20190416
  4. ELIQUIS [Concomitant]
     Active Substance: APIXABAN
     Dates: start: 20180602, end: 20190416
  5. PREMARIN [Concomitant]
     Active Substance: ESTROGENS, CONJUGATED
     Dates: start: 20150502, end: 20190416
  6. SPIRONOLACTONE. [Concomitant]
     Active Substance: SPIRONOLACTONE
     Dates: start: 20150322, end: 20190416
  7. LEVOTHYROXINE. [Concomitant]
     Active Substance: LEVOTHYROXINE
     Dates: start: 20150812, end: 20190416
  8. ATORVASTATIN [Concomitant]
     Active Substance: ATORVASTATIN
     Dates: start: 20180110, end: 20190416
  9. NEXIUM [Concomitant]
     Active Substance: ESOMEPRAZOLE MAGNESIUM
     Dates: start: 20150502, end: 20190416
  10. CLONIDINE. [Suspect]
     Active Substance: CLONIDINE
     Indication: HYPERTENSION
     Route: 048
     Dates: start: 20190411, end: 20190416
  11. QUINAPRIL. [Concomitant]
     Active Substance: QUINAPRIL
     Dates: start: 20150322, end: 20190416

REACTIONS (2)
  - Hypertension [None]
  - Product substitution issue [None]

NARRATIVE: CASE EVENT DATE: 20190413
